FAERS Safety Report 8523125-8 (Version None)
Quarter: 2012Q3

REPORT INFORMATION
  Report Type: 
  Country: None (occurrence: None)
  Receive Date: 20120713
  Receipt Date: 20120713
  Transmission Date: 20120928
  Serious: No
  Sender: FDA-Public Use
  Company Number: None

PATIENT
  Age: 51 Year
  Sex: Male
  Weight: 78 kg

DRUGS (1)
  1. IPILIMUMAB [Suspect]
     Indication: NEOPLASM MALIGNANT
     Dosage: MG
     Dates: start: 20120209, end: 20120412

REACTIONS (2)
  - BRAIN OEDEMA [None]
  - REFUSAL OF TREATMENT BY PATIENT [None]
